FAERS Safety Report 6771896-3 (Version None)
Quarter: 2010Q2

REPORT INFORMATION
  Report Type: 
  Country: None (occurrence: None)
  Receive Date: 20100616
  Receipt Date: 20090803
  Transmission Date: 20101027
  Serious: No
  Sender: FDA-Public Use
  Company Number: US-ASTRAZENECA-2009SE06790

PATIENT
  Age: 17 Year
  Sex: Female

DRUGS (2)
  1. ENTOCORT EC [Suspect]
     Route: 048
  2. ORTHO TRI-CYCLEN [Concomitant]

REACTIONS (2)
  - HAEMATURIA [None]
  - VAGINAL HAEMORRHAGE [None]
